FAERS Safety Report 9287433 (Version 6)
Quarter: 2013Q3

REPORT INFORMATION
  Report Type: Spontaneous
  Country: US (occurrence: US)
  Receive Date: 20130514
  Receipt Date: 20130926
  Transmission Date: 20140515
  Serious: Yes (Hospitalization)
  Sender: FDA-Public Use
  Company Number: US-BIOGENIDEC-2013BI042016

PATIENT
  Age: 54 Year
  Sex: Male

DRUGS (2)
  1. TYSABRI [Suspect]
     Indication: MULTIPLE SCLEROSIS
     Route: 042
     Dates: start: 20110830
  2. AVONEX [Concomitant]
     Indication: MULTIPLE SCLEROSIS
     Dates: start: 19991101

REACTIONS (8)
  - Urosepsis [Unknown]
  - Urinary retention [Unknown]
  - Fall [Recovered/Resolved]
  - Asthenia [Not Recovered/Not Resolved]
  - Dysstasia [Not Recovered/Not Resolved]
  - Multiple sclerosis relapse [Recovered/Resolved]
  - Gait disturbance [Not Recovered/Not Resolved]
  - Abasia [Not Recovered/Not Resolved]
